FAERS Safety Report 9793165 (Version 1)
Quarter: 2014Q1

REPORT INFORMATION
  Report Type: Spontaneous
  Country: ES (occurrence: ES)
  Receive Date: 20140102
  Receipt Date: 20140102
  Transmission Date: 20141002
  Serious: Yes (Hospitalization)
  Sender: FDA-Public Use
  Company Number: ES-BRISTOL-MYERS SQUIBB COMPANY-19936145

PATIENT
  Age: 48 Year
  Sex: Female

DRUGS (4)
  1. DASATINIB [Suspect]
     Indication: CHRONIC MYELOID LEUKAEMIA
     Dates: start: 200904
  2. TRAMADOL [Concomitant]
     Dosage: 1DF-100 UNITS NOS
  3. DEXKETOPROFEN TROMETAMOL [Concomitant]
  4. LYRICA [Concomitant]
     Dosage: 1DF-150 UNITS NOS

REACTIONS (3)
  - Haemorrhagic stroke [Recovered/Resolved with Sequelae]
  - Hydrocephalus [Recovered/Resolved]
  - Tracheobronchitis [Recovered/Resolved]
